FAERS Safety Report 14491158 (Version 1)
Quarter: 2018Q1

REPORT INFORMATION
  Report Type: Spontaneous
  Country: US (occurrence: US)
  Receive Date: 20180203
  Receipt Date: 20180203
  Transmission Date: 20180509
  Serious: Yes (Hospitalization)
  Sender: FDA-Public Use
  Company Number: None

PATIENT
  Age: 70 Year
  Sex: Female
  Weight: 77.3 kg

DRUGS (4)
  1. METFORMIN HYDROCHLORIDE. [Suspect]
     Active Substance: METFORMIN HYDROCHLORIDE
     Dates: end: 20180112
  2. CARBOPLATIN. [Suspect]
     Active Substance: CARBOPLATIN
     Dates: end: 20180102
  3. TAXOL [Suspect]
     Active Substance: PACLITAXEL
     Dates: end: 20180102
  4. LOVENOX [Concomitant]
     Active Substance: ENOXAPARIN SODIUM

REACTIONS (7)
  - Mucosal dryness [None]
  - Pallor [None]
  - Skin turgor decreased [None]
  - Intestinal fistula [None]
  - Vomiting [None]
  - Ileus [None]
  - Diarrhoea [None]

NARRATIVE: CASE EVENT DATE: 20180112
